FAERS Safety Report 16701644 (Version 1)
Quarter: 2019Q3

REPORT INFORMATION
  Report Type: Spontaneous
  Country: US (occurrence: US)
  Receive Date: 20190708
  Receipt Date: 20190708
  Transmission Date: 20191004
  Serious: Yes (Disabling, Other)
  Sender: FDA-Public Use
  Company Number: None

PATIENT
  Age: 22 Year
  Sex: Male
  Weight: 58.5 kg

DRUGS (2)
  1. CBD TOBACCO TO RELAX [Suspect]
     Active Substance: CANNABIDIOL\HERBALS
  2. MULTIVITIMIN [Concomitant]
     Active Substance: VITAMINS

REACTIONS (3)
  - Psychomotor hyperactivity [None]
  - Confusional state [None]
  - Anger [None]

NARRATIVE: CASE EVENT DATE: 20190630
